FAERS Safety Report 8724032 (Version 4)
Quarter: 2013Q4

REPORT INFORMATION
  Report Type: Spontaneous
  Country: US (occurrence: US)
  Receive Date: 20120815
  Receipt Date: 20131016
  Transmission Date: 20140711
  Serious: No
  Sender: FDA-Public Use
  Company Number: US-ASTRAZENECA-2012SE54920

PATIENT
  Age: 64 Year
  Sex: Male
  Weight: 115.7 kg

DRUGS (9)
  1. CRESTOR [Suspect]
     Indication: BLOOD CHOLESTEROL INCREASED
     Route: 048
  2. LISINOPRIL [Suspect]
     Route: 048
  3. LISINOPRIL HCTZ [Concomitant]
     Indication: HYPERTENSION
  4. AXIRON [Concomitant]
  5. OXYCODONE [Concomitant]
  6. OXYCODONE/ACETAMINOPHEN [Concomitant]
  7. NAPROXIN [Concomitant]
  8. FLURAZEPAM [Concomitant]
  9. CYVITA [Concomitant]

REACTIONS (6)
  - Anaemia [Unknown]
  - Glucose tolerance impaired [Unknown]
  - Feeling abnormal [Unknown]
  - Blood cholesterol abnormal [Unknown]
  - Haemoglobin increased [Unknown]
  - Drug dose omission [Unknown]
